FAERS Safety Report 9637048 (Version 1)
Quarter: 2013Q4

REPORT INFORMATION
  Report Type: Spontaneous
  Country: US (occurrence: US)
  Receive Date: 20131022
  Receipt Date: 20131022
  Transmission Date: 20140711
  Serious: Yes (Other)
  Sender: FDA-Public Use
  Company Number: US-SHIRE-ALL1-2013-07071

PATIENT
  Age: 18 Year
  Sex: Female
  Weight: 54.88 kg

DRUGS (4)
  1. VYVANSE [Suspect]
     Indication: ATTENTION DEFICIT/HYPERACTIVITY DISORDER
     Dosage: 20 MG, 1X/DAY:QD
     Route: 048
     Dates: start: 201308, end: 201308
  2. VYVANSE [Suspect]
     Dosage: 40 MG, 1X/DAY:QD
     Route: 048
     Dates: start: 201308
  3. LEXAPRO [Concomitant]
     Indication: ANXIETY
     Dosage: 20 MG, 1X/DAY:QD
     Route: 048
     Dates: start: 201304
  4. ALDACTONE                          /00006201/ [Concomitant]
     Indication: ACNE
     Dosage: 100 MG, 1X/DAY:QD
     Route: 048
     Dates: start: 2012

REACTIONS (17)
  - Drug withdrawal syndrome [Recovered/Resolved]
  - Chest pain [Recovered/Resolved]
  - Weight fluctuation [Not Recovered/Not Resolved]
  - Feeling abnormal [Recovering/Resolving]
  - Thinking abnormal [Recovering/Resolving]
  - Muscle twitching [Recovering/Resolving]
  - Screaming [Recovering/Resolving]
  - Paraesthesia [Recovering/Resolving]
  - Muscular weakness [Recovering/Resolving]
  - Disturbance in attention [Recovered/Resolved]
  - Panic attack [Recovering/Resolving]
  - Inappropriate affect [Recovering/Resolving]
  - Tic [Recovering/Resolving]
  - Dizziness [Recovered/Resolved]
  - Tremor [Recovered/Resolved]
  - Decreased appetite [Not Recovered/Not Resolved]
  - Drug dose omission [Recovered/Resolved]
